FAERS Safety Report 8320573-6 (Version None)
Quarter: 2012Q2

REPORT INFORMATION
  Report Type: 
  Country: None (occurrence: None)
  Receive Date: 20120430
  Receipt Date: 20120425
  Transmission Date: 20120825
  Serious: Yes (Life-Threatening, Hospitalization, Other)
  Sender: FDA-Public Use
  Company Number: US-PFIZER INC-2009205355

PATIENT
  Age: 34 Year
  Sex: Male
  Weight: 85.261 kg

DRUGS (1)
  1. CHANTIX [Suspect]
     Indication: SMOKING CESSATION THERAPY
     Dosage: 1 DOSE TWICE A DAY
     Route: 048
     Dates: start: 20081001, end: 20081217

REACTIONS (11)
  - DYSPNOEA [None]
  - NIGHTMARE [None]
  - ANXIETY [None]
  - SUICIDAL IDEATION [None]
  - INSOMNIA [None]
  - PANIC ATTACK [None]
  - DEPRESSION [None]
  - AGGRESSION [None]
  - ADVERSE DRUG REACTION [None]
  - MOOD SWINGS [None]
  - ABNORMAL DREAMS [None]
